FAERS Safety Report 23487491 (Version 2)
Quarter: 2024Q1

REPORT INFORMATION
  Report Type: Report from Study
  Country: US (occurrence: US)
  Receive Date: 20240206
  Receipt Date: 20240326
  Transmission Date: 20240410
  Serious: Yes (Hospitalization)
  Sender: FDA-Public Use
  Company Number: US-Eisai-EC-2024-156998

PATIENT
  Age: 45 Year
  Sex: Female
  Weight: 93.6 kg

DRUGS (6)
  1. LENVIMA [Suspect]
     Active Substance: LENVATINIB
     Indication: Renal cancer
     Route: 048
     Dates: start: 20231216
  2. LENVIMA [Suspect]
     Active Substance: LENVATINIB
     Dosage: DOSE UNKNOWN
     Route: 048
  3. KEYTRUDA [Suspect]
     Active Substance: PEMBROLIZUMAB
     Indication: Product used for unknown indication
     Dosage: DOSE AND FREQUENCY UNKNOWN
     Route: 041
  4. MORPHINE [Concomitant]
     Active Substance: MORPHINE
     Indication: Chest pain
     Dates: start: 202312
  5. COMPAZINE [Concomitant]
     Active Substance: PROCHLORPERAZINE MALEATE
     Indication: Nausea
     Dates: start: 202312
  6. Orajel mouthwash [Concomitant]

REACTIONS (8)
  - Dehydration [Unknown]
  - Chest pain [Unknown]
  - Hyperhidrosis [Unknown]
  - Blood pressure increased [Not Recovered/Not Resolved]
  - Stomatitis [Recovered/Resolved]
  - Nasal ulcer [Recovering/Resolving]
  - Night sweats [Unknown]
  - Nausea [Recovering/Resolving]

NARRATIVE: CASE EVENT DATE: 20231201
